FAERS Safety Report 7121781-2 (Version None)
Quarter: 2010Q4

REPORT INFORMATION
  Report Type: 
  Country: None (occurrence: None)
  Receive Date: 20101124
  Receipt Date: 20101014
  Transmission Date: 20110411
  Serious: Yes (Other)
  Sender: FDA-Public Use
  Company Number: DE-AMGEN-DEUSP2010000221

PATIENT

DRUGS (6)
  1. ARANESP [Suspect]
     Indication: PRODUCT USED FOR UNKNOWN INDICATION
     Dosage: 20 A?G, UNK
     Route: 058
     Dates: start: 20070901, end: 20080501
  2. TORASEMID [Concomitant]
     Indication: HYPERTENSION
     Dosage: 10 MG, UNK
     Route: 048
     Dates: start: 20050101
  3. INSULIN                            /00030503/ [Concomitant]
     Indication: DIABETES MELLITUS
     Dosage: UNK
     Route: 058
     Dates: start: 19900101
  4. MARCUMAR [Concomitant]
     Indication: ATRIAL FIBRILLATION
     Dosage: UNK
     Route: 048
     Dates: start: 20100107
  5. AMLODIPINE BESYLATE [Concomitant]
     Indication: HYPERTONIA
     Dosage: 10 MG, UNK
     Route: 048
     Dates: start: 20090101
  6. CALCIUM ACETATE [Concomitant]
     Indication: BLOOD PHOSPHORUS ABNORMAL
     Dosage: 1 G, UNK
     Route: 048
     Dates: start: 20080101

REACTIONS (2)
  - INJECTION SITE PAIN [None]
  - RENAL FAILURE [None]
